FAERS Safety Report 4969377-2 (Version None)
Quarter: 2006Q2

REPORT INFORMATION
  Report Type: 
  Country: None (occurrence: None)
  Receive Date: 20060405
  Receipt Date: 20060329
  Transmission Date: 20061013
  Serious: Yes (Hospitalization)
  Sender: FDA-Public Use
  Company Number: CIP06000726

PATIENT
  Age: 54 Year
  Sex: Female

DRUGS (4)
  1. ASACOL [Suspect]
     Indication: COLITIS ULCERATIVE
     Dosage: 3200 MG DAILY, ORAL  ; 1600 MG DAILY, ORAL
     Route: 048
     Dates: start: 19990101
  2. NEXIUM [Concomitant]
  3. MAXALT [Concomitant]
  4. CLONIDINE [Concomitant]

REACTIONS (5)
  - BREAST CANCER FEMALE [None]
  - DRUG INEFFECTIVE [None]
  - INFLAMMATION [None]
  - POST PROCEDURAL COMPLICATION [None]
  - PROCTITIS HAEMORRHAGIC [None]
